FAERS Safety Report 7690709 (Version 2)
Quarter: 2013Q1

REPORT INFORMATION
  Report Type: Spontaneous
  Country: US (occurrence: None)
  Receive Date: 20101108
  Receipt Date: 20121025
  Transmission Date: 20140127
  Serious: Yes (Disabling)
  Sender: FDA-Public Use
  Company Number: 742133

PATIENT
  Age: 48 Year
  Sex: Female

DRUGS (3)
  1. FLUDARABINE PHOSPHATE [Suspect]
     Indication: METASTATIC MALIGNANT MELANOMA
  2. CYCLOPHOSPHAMIDE [Suspect]
     Indication: METASTATIC MALIGNANT MELANOMA
     Dosage: 60 MG/KG MILLIGRAM(S) /KILOGRAM,
  3. PROLEUKIN [Concomitant]

REACTIONS (10)
  - Blindness [None]
  - Hypoaesthesia [None]
  - Muscular weakness [None]
  - Gliosis [None]
  - Retinal degeneration [None]
  - Melanoma recurrent [None]
  - Malignant neoplasm progression [None]
  - Retinal degeneration [None]
  - Nervous system disorder [None]
  - Neurotoxicity [None]
